FAERS Safety Report 24184958 (Version 11)
Quarter: 2025Q4

REPORT INFORMATION
  Report Type: Report from Study
  Country: CN (occurrence: CN)
  Receive Date: 20240807
  Receipt Date: 20251228
  Transmission Date: 20260117
  Serious: Yes (Hospitalization, Other)
  Sender: ABBVIE
  Company Number: CN-ABBVIE-5863331

PATIENT
  Age: 71 Year
  Sex: Male

DRUGS (13)
  1. OZURDEX [Suspect]
     Active Substance: DEXAMETHASONE
     Indication: Diabetic retinal oedema
     Dosage: ONCE
     Route: 050
     Dates: start: 20240627, end: 20240627
  2. ASPIRIN [Concomitant]
     Active Substance: ASPIRIN
     Indication: Hypertension
     Dosage: ENTERIC-COATED TABLETS
     Route: 048
     Dates: start: 2017
  3. ASPIRIN [Concomitant]
     Active Substance: ASPIRIN
     Indication: Hypertension
     Route: 048
     Dates: start: 2024
  4. AMLODIPINE\VALSARTAN [Concomitant]
     Active Substance: AMLODIPINE\VALSARTAN
     Indication: Hypertension
     Route: 048
     Dates: start: 202311
  5. METOPROLOL TARTRATE [Concomitant]
     Active Substance: METOPROLOL TARTRATE
     Indication: Hypertension
     Route: 048
     Dates: start: 202401
  6. INSULIN ASPART [Concomitant]
     Active Substance: INSULIN ASPART
     Indication: Type 2 diabetes mellitus
     Dosage: TIME INTERVAL: 0.33333333 DAYS
     Route: 058
     Dates: start: 2017
  7. INSULIN GLARGINE [Concomitant]
     Active Substance: INSULIN GLARGINE
     Indication: Type 2 diabetes mellitus
     Dosage: 12-15 IU
     Route: 058
     Dates: start: 2017
  8. METHYLCOBALAMIN [Concomitant]
     Active Substance: METHYLCOBALAMIN
     Indication: Nervous system disorder
     Dosage: TIME INTERVAL: 0.33333333 DAYS
     Route: 048
     Dates: start: 2017
  9. FOLIC ACID [Concomitant]
     Active Substance: FOLIC ACID
     Indication: Anaemia
     Route: 048
     Dates: start: 2024
  10. Tropicamide Phenylephrine [Concomitant]
     Indication: Mydriasis
     Dosage: TIME INTERVAL: 0.33333333 DAYS: OS (LEFT), 1 DROP
     Route: 047
     Dates: start: 20240627, end: 20240627
  11. TOBRAMYCIN AND DEXAMETHASONE [Concomitant]
     Active Substance: DEXAMETHASONE\TOBRAMYCIN
     Indication: Infection prophylaxis
     Dosage: OS (LEFT), APPROPRIATE AMOUNT, G, ONCE
     Route: 047
     Dates: start: 20240627, end: 20240627
  12. Proparacaine Hyrochloride [Concomitant]
     Indication: Local anaesthesia
     Dosage: OS (LEFT), 3 DROPS, ONCE
     Route: 047
     Dates: start: 20240627, end: 20240627
  13. LEVOFLOXACIN HYDROCHLORIDE [Concomitant]
     Active Substance: LEVOFLOXACIN HYDROCHLORIDE
     Indication: Infection prophylaxis
     Dosage: TIME INTERVAL: 0.33333333 DAYS: OS (LEFT), 1 DROP
     Route: 047
     Dates: start: 20240628, end: 20240630

REACTIONS (4)
  - Duodenal ulcer haemorrhage [Recovered/Resolved]
  - Duodenal ulcer haemorrhage [Recovered/Resolved]
  - Duodenal ulcer haemorrhage [Recovered/Resolved]
  - Limb injury [Recovered/Resolved]

NARRATIVE: CASE EVENT DATE: 20240721
